FAERS Safety Report 9364783 (Version 2)
Quarter: 2013Q2

REPORT INFORMATION
  Report Type: Spontaneous
  Country: ES (occurrence: ES)
  Receive Date: 20130624
  Receipt Date: 20130624
  Transmission Date: 20140414
  Serious: Yes (Other)
  Sender: FDA-Public Use
  Company Number: ES-TEVA-2011005514

PATIENT
  Age: 57 Year
  Sex: Female

DRUGS (1)
  1. ACTIQ 200 MCG COMPRESSED LOZENGE [Suspect]
     Indication: RHEUMATOID ARTHRITIS
     Route: 048
     Dates: start: 20080411, end: 20100924

REACTIONS (3)
  - Drug abuse [Recovered/Resolved]
  - Drug dependence [Recovered/Resolved]
  - Off label use [Recovered/Resolved]
